FAERS Safety Report 4924985-X (Version None)
Quarter: 2006Q1

REPORT INFORMATION
  Report Type: 
  Country: None (occurrence: None)
  Receive Date: 20060127
  Receipt Date: 20051211
  Transmission Date: 20060701
  Serious: Yes (Other)
  Sender: FDA-Public Use
  Company Number: 2005166821

PATIENT
  Age: 90 Year
  Sex: Male
  Weight: 65.7716 kg

DRUGS (3)
  1. LYRICA [Suspect]
     Indication: BACK PAIN
     Dosage: 3 IN 1 D, ORAL
     Route: 048
     Dates: start: 20050101
  2. ANTIHYPERTENSIVES [Concomitant]
  3. DIURETICS [Concomitant]

REACTIONS (1)
  - DRUG INEFFECTIVE [None]
